FAERS Safety Report 7347532-4 (Version None)
Quarter: 2011Q1

REPORT INFORMATION
  Report Type: 
  Country: None (occurrence: None)
  Receive Date: 20110311
  Receipt Date: 20110301
  Transmission Date: 20110831
  Serious: Yes (Hospitalization)
  Sender: FDA-Public Use
  Company Number: JP-CELGENEUS-087-21880-10091772

PATIENT
  Sex: Male
  Weight: 76.5 kg

DRUGS (14)
  1. REVLIMID [Suspect]
     Dosage: 10 MILLIGRAM
     Route: 048
     Dates: start: 20101115, end: 20101205
  2. METHYCOBAL [Concomitant]
     Indication: PROPHYLAXIS
     Dosage: 1500 MILLIGRAM
     Route: 048
     Dates: start: 20100820, end: 20101212
  3. REVLIMID [Suspect]
     Indication: MULTIPLE MYELOMA
     Dosage: 10 MILLIGRAM
     Route: 048
     Dates: start: 20100820, end: 20100909
  4. SELBEX [Concomitant]
     Indication: PROPHYLAXIS
     Dosage: 150 MILLIGRAM
     Route: 048
     Dates: start: 20100820, end: 20101212
  5. BAKTAR [Concomitant]
     Indication: PROPHYLAXIS
     Dosage: 480 MILLIGRAM
     Route: 048
     Dates: start: 20100820, end: 20101212
  6. LENADEX [Suspect]
     Dosage: 4 MILLIGRAM
     Route: 048
     Dates: start: 20101015, end: 20101103
  7. REVLIMID [Suspect]
     Dosage: 10 MILLIGRAM
     Route: 048
     Dates: start: 20101015, end: 20101104
  8. LENADEX [Suspect]
     Indication: MULTIPLE MYELOMA
     Dosage: 8 MILLIGRAM
     Route: 048
     Dates: start: 20100820, end: 20100908
  9. LASIX [Concomitant]
     Dosage: 40 MILLIGRAM
     Route: 048
     Dates: start: 20100820, end: 20101212
  10. PARIET [Concomitant]
     Indication: PROPHYLAXIS
     Dosage: 10 MILLIGRAM
     Route: 048
     Dates: start: 20100820, end: 20101212
  11. LENADEX [Suspect]
     Dosage: 4 MILLIGRAM
     Route: 048
     Dates: start: 20101115, end: 20101204
  12. ZOMETA [Concomitant]
     Indication: MULTIPLE MYELOMA
     Dosage: 4 MILLIGRAM
     Route: 041
     Dates: start: 20100820, end: 20100820
  13. JUVELA [Concomitant]
     Indication: PROPHYLAXIS
     Dosage: 150 MILLIGRAM
     Route: 048
     Dates: start: 20100820, end: 20101212
  14. ZYLORIC [Concomitant]
     Dosage: 100 MILLIGRAM
     Route: 048
     Dates: start: 20100820, end: 20101212

REACTIONS (2)
  - DELIRIUM [None]
  - NASOPHARYNGITIS [None]
